FAERS Safety Report 10388027 (Version 2)
Quarter: 2014Q3

REPORT INFORMATION
  Report Type: Spontaneous
  Country: US (occurrence: US)
  Receive Date: 20140815
  Receipt Date: 20140819
  Transmission Date: 20150326
  Serious: Yes (Death, Other)
  Sender: FDA-Public Use
  Company Number: US-TEVA-501760USA

PATIENT
  Sex: Male
  Weight: 127.12 kg

DRUGS (5)
  1. ATIVAN [Concomitant]
     Active Substance: LORAZEPAM
     Indication: PROPHYLAXIS
  2. ACTIQ [Suspect]
     Active Substance: FENTANYL CITRATE
     Indication: CANCER PAIN
     Route: 048
     Dates: start: 20140730
  3. ZOFRAN [Concomitant]
     Active Substance: ONDANSETRON HYDROCHLORIDE
  4. DURAGESIC [Concomitant]
     Active Substance: FENTANYL
     Indication: CANCER PAIN
     Route: 062
  5. FENTANYL. [Concomitant]
     Active Substance: FENTANYL
     Indication: SMALL INTESTINE CARCINOMA
     Route: 062

REACTIONS (2)
  - Gastrointestinal carcinoma [Fatal]
  - Liver disorder [Fatal]
